FAERS Safety Report 8164039-5 (Version None)
Quarter: 2012Q1

REPORT INFORMATION
  Report Type: 
  Country: None (occurrence: None)
  Receive Date: 20120224
  Receipt Date: 20120214
  Transmission Date: 20120608
  Serious: Yes (Death, Hospitalization)
  Sender: FDA-Public Use
  Company Number: PHHO2012IN001991

PATIENT
  Sex: Female
  Weight: 50 kg

DRUGS (11)
  1. BLINDED NO TREATMENT RECEIVED [Suspect]
     Indication: CARDIAC FAILURE
     Dosage: NO TREATMENT
  2. ALISKIREN [Suspect]
     Indication: CARDIAC FAILURE
     Dosage: UNK
     Route: 048
     Dates: start: 20111224, end: 20120131
  3. ENALAPRIL MALEATE [Suspect]
     Indication: CARDIAC FAILURE
     Dosage: NO TREATMENT
  4. ENALAPRIL MALEATE [Suspect]
     Indication: CARDIAC FAILURE
     Dosage: 10 MG, BID
     Route: 048
     Dates: start: 20111022, end: 20111115
  5. BLINDED ALISKIREN [Suspect]
     Indication: CARDIAC FAILURE
     Dosage: NO TREATMENT
  6. ENALAPRIL MALEATE [Suspect]
     Dosage: 20 MG, BID
     Route: 048
     Dates: start: 20111115, end: 20111224
  7. AZTOR [Concomitant]
     Indication: MYOCARDIAL ISCHAEMIA
     Dosage: 20 MG, QD
     Route: 048
     Dates: start: 20110525, end: 20120131
  8. LANOXIN [Suspect]
     Indication: CARDIAC FAILURE CHRONIC
     Dosage: 0.25 MG, QD
     Route: 048
     Dates: start: 20110727, end: 20120131
  9. THYROX [Concomitant]
     Indication: HYPOTHYROIDISM
     Dosage: 25 UG, QD
     Route: 048
     Dates: start: 20110930, end: 20120131
  10. COLSPRIN [Concomitant]
     Indication: MYOCARDIAL ISCHAEMIA
     Dosage: 100 MG, QD
     Route: 048
     Dates: start: 20110525, end: 20120131
  11. LASIX [Concomitant]
     Indication: CARDIAC FAILURE CHRONIC
     Dosage: 40 MG, X 1/2 BID
     Route: 048
     Dates: start: 20110727, end: 20120131

REACTIONS (2)
  - RENAL FAILURE [None]
  - SUBARACHNOID HAEMORRHAGE [None]
